FAERS Safety Report 6464663-1 (Version None)
Quarter: 2009Q4

REPORT INFORMATION
  Report Type: 
  Country: None (occurrence: None)
  Receive Date: 20091201
  Receipt Date: 20091126
  Transmission Date: 20100525
  Serious: Yes (Other)
  Sender: FDA-Public Use
  Company Number: PT-BRISTOL-MYERS SQUIBB COMPANY-14873012

PATIENT
  Age: 40 Year
  Sex: Male

DRUGS (2)
  1. ATAZANAVIR [Suspect]
  2. TRUVADA [Suspect]

REACTIONS (1)
  - PSYCHOTIC DISORDER [None]
